FAERS Safety Report 5145845-8 (Version None)
Quarter: 2006Q4

REPORT INFORMATION
  Report Type: 
  Country: None (occurrence: None)
  Receive Date: 20061108
  Receipt Date: 20061026
  Transmission Date: 20070319
  Serious: Yes (Hospitalization)
  Sender: FDA-Public Use
  Company Number: PHRM2006FR02933

PATIENT
  Age: 1 Day
  Sex: Male
  Weight: 4.06 kg

DRUGS (1)
  1. LEPONEX [Suspect]
     Dosage: MATERNAL DOSE : 100 MG/DAY
     Route: 064

REACTIONS (9)
  - ABDOMINAL DISTENSION [None]
  - BIOPSY RECTUM [None]
  - DRUG EXPOSURE DURING PREGNANCY [None]
  - ENEMA ADMINISTRATION [None]
  - GASTROINTESTINAL TUBE INSERTION [None]
  - NEONATAL INTESTINAL OBSTRUCTION [None]
  - STOOL ANALYSIS [None]
  - VOMITING [None]
  - VOMITING NEONATAL [None]
